FAERS Safety Report 8541251-4 (Version None)
Quarter: 2012Q3

REPORT INFORMATION
  Report Type: 
  Country: None (occurrence: None)
  Receive Date: 20120726
  Receipt Date: 20110926
  Transmission Date: 20120928
  Serious: No
  Sender: FDA-Public Use
  Company Number: US-ASTRAZENECA-2011SE57571

PATIENT
  Age: 71 Year
  Sex: Male
  Weight: 97.5 kg

DRUGS (5)
  1. NAMENDA [Concomitant]
     Indication: MEMORY IMPAIRMENT
  2. SEROQUEL [Suspect]
     Route: 048
  3. PINADOL [Concomitant]
     Indication: BLOOD PRESSURE MANAGEMENT
  4. RIVASTIGMINE [Concomitant]
     Indication: MEMORY IMPAIRMENT
  5. SEROQUEL [Suspect]
     Indication: DEMENTIA ALZHEIMER'S TYPE
     Dosage: HALF TABLET (75 MG) IN THE MORNING
     Route: 048

REACTIONS (2)
  - MALAISE [None]
  - WRONG TECHNIQUE IN DRUG USAGE PROCESS [None]
